FAERS Safety Report 10544238 (Version 2)
Quarter: 2014Q4

REPORT INFORMATION
  Report Type: Spontaneous
  Country: JP (occurrence: JP)
  Receive Date: 20141027
  Receipt Date: 20141031
  Transmission Date: 20150529
  Serious: No
  Sender: FDA-Public Use
  Company Number: JP-SHIRE-JP201407297

PATIENT
  Age: 81 Year
  Sex: Male

DRUGS (2)
  1. MAXACALCITOL [Suspect]
     Active Substance: MAXACALCITOL
     Indication: PSORIASIS
     Dosage: UNK, UNKNOWN
     Route: 061
  2. FOSRENOL [Suspect]
     Active Substance: LANTHANUM CARBONATE
     Indication: HYPERPHOSPHATAEMIA
     Dosage: 750 MG, 1X/DAY:QD (PER DAY)
     Route: 048

REACTIONS (3)
  - Psoriasis [Unknown]
  - Hypoalbuminaemia [Unknown]
  - Hypercalcaemia [Unknown]
